FAERS Safety Report 10732425 (Version 1)
Quarter: 2015Q1

REPORT INFORMATION
  Report Type: Spontaneous
  Country: US (occurrence: US)
  Receive Date: 20150123
  Receipt Date: 20150123
  Transmission Date: 20150721
  Serious: Yes (Other)
  Sender: FDA-Public Use
  Company Number: US-PFIZER INC-2015028743

PATIENT
  Sex: Female

DRUGS (2)
  1. EFFEXOR XR [Suspect]
     Active Substance: VENLAFAXINE HYDROCHLORIDE
     Dosage: UNK
  2. MAXALT [Interacting]
     Active Substance: RIZATRIPTAN BENZOATE
     Dosage: UNK

REACTIONS (2)
  - Drug interaction [Unknown]
  - Serotonin syndrome [Unknown]
